FAERS Safety Report 14543868 (Version 2)
Quarter: 2018Q2

REPORT INFORMATION
  Report Type: Spontaneous
  Country: US (occurrence: US)
  Receive Date: 20180216
  Receipt Date: 20180417
  Transmission Date: 20180711
  Serious: No
  Sender: FDA-Public Use
  Company Number: US-PFIZER INC-2018063621

PATIENT
  Age: 71 Year
  Sex: Female

DRUGS (1)
  1. EFFEXOR XR [Suspect]
     Active Substance: VENLAFAXINE HYDROCHLORIDE
     Dosage: 150 MG, DAILY
     Dates: start: 200509

REACTIONS (5)
  - Tinnitus [Not Recovered/Not Resolved]
  - Feeling abnormal [Unknown]
  - Crying [Recovered/Resolved]
  - Vomiting [Recovered/Resolved]
  - Panic reaction [Recovered/Resolved]

NARRATIVE: CASE EVENT DATE: 20180228
